FAERS Safety Report 13483441 (Version 1)
Quarter: 2017Q2

REPORT INFORMATION
  Report Type: Spontaneous
  Country: US (occurrence: US)
  Receive Date: 20170426
  Receipt Date: 20170426
  Transmission Date: 20170830
  Serious: No
  Sender: FDA-Public Use
  Company Number: US-ASTRAZENECA-2017SE40739

PATIENT
  Age: 729 Month
  Sex: Female
  Weight: 47.6 kg

DRUGS (3)
  1. KOMBIGLYZE XR [Suspect]
     Active Substance: METFORMIN HYDROCHLORIDE\SAXAGLIPTIN HYDROCHLORIDE
     Indication: TYPE 2 DIABETES MELLITUS
     Dosage: 2.5MG/1000MG TWICE DAILY
     Route: 048
     Dates: start: 200711
  2. INSULIN [Concomitant]
     Active Substance: INSULIN NOS
  3. KOMBIGLYZE XR [Suspect]
     Active Substance: METFORMIN HYDROCHLORIDE\SAXAGLIPTIN HYDROCHLORIDE
     Indication: TYPE 2 DIABETES MELLITUS
     Dosage: DAILY
     Route: 048

REACTIONS (2)
  - Medication residue present [Unknown]
  - Off label use [Unknown]

NARRATIVE: CASE EVENT DATE: 200711
